FAERS Safety Report 6272458-7 (Version None)
Quarter: 2009Q3

REPORT INFORMATION
  Report Type: 
  Country: None (occurrence: None)
  Receive Date: 20090717
  Receipt Date: 20090708
  Transmission Date: 20100115
  Serious: Yes (Life-Threatening, Hospitalization, Other)
  Sender: FDA-Public Use
  Company Number: US-BRISTOL-MYERS SQUIBB COMPANY-14692859

PATIENT
  Age: 79 Year
  Sex: Male

DRUGS (15)
  1. DEFINITY [Suspect]
     Indication: CORONARY ARTERY DISEASE
     Dosage: 1 DF= 1 VIAL TO 10 ML WITH 0.9 NORMAL SALINE 2M.L
     Route: 040
     Dates: start: 20090625, end: 20090625
  2. DEFINITY [Suspect]
     Indication: CARDIAC STRESS TEST
     Dosage: 1 DF= 1 VIAL TO 10 ML WITH 0.9 NORMAL SALINE 2M.L
     Route: 040
     Dates: start: 20090625, end: 20090625
  3. DEFINITY [Suspect]
     Indication: DYSPNOEA
     Dosage: 1 DF= 1 VIAL TO 10 ML WITH 0.9 NORMAL SALINE 2M.L
     Route: 040
     Dates: start: 20090625, end: 20090625
  4. METFORMIN [Concomitant]
     Indication: DIABETES MELLITUS
     Route: 048
  5. LOPRESSOR [Concomitant]
     Dosage: LOPRESSOR 25
     Route: 048
  6. ASPIRIN [Concomitant]
     Route: 048
  7. TRICOR [Concomitant]
     Route: 048
  8. VALIUM [Concomitant]
     Route: 048
  9. LASIX [Concomitant]
     Route: 048
  10. COUMADIN [Concomitant]
     Dosage: AS DIRECTED
  11. XOPENEX [Concomitant]
  12. LOVAZA [Concomitant]
  13. QUINAPRIL [Concomitant]
     Route: 048
  14. VYTORIN [Concomitant]
     Dosage: 1DF=10/80(UNITS NOT SPECIFIED)
     Route: 048
  15. M.V.I. [Concomitant]

REACTIONS (6)
  - BLOOD PRESSURE INCREASED [None]
  - DYSPNOEA [None]
  - FATIGUE [None]
  - HYPOXIA [None]
  - MUSCULOSKELETAL DISCOMFORT [None]
  - VENTRICULAR TACHYCARDIA [None]
